FAERS Safety Report 5145665-4 (Version None)
Quarter: 2006Q4

REPORT INFORMATION
  Report Type: 
  Country: None (occurrence: None)
  Receive Date: 20061101
  Receipt Date: 20061024
  Transmission Date: 20070319
  Serious: Yes (Death, Life-Threatening, Hospitalization)
  Sender: FDA-Public Use
  Company Number: 430006E06DEU

PATIENT
  Age: 68 Year
  Sex: Female

DRUGS (3)
  1. NOVANTRONE [Suspect]
     Dosage: 12.2
     Dates: start: 20040422, end: 20040426
  2. CYTARABINE [Suspect]
     Dosage: 170
     Dates: start: 20040422, end: 20040428
  3. ETOPOSIDE [Concomitant]

REACTIONS (2)
  - CEREBRAL HAEMORRHAGE [None]
  - THROMBOCYTOPENIA [None]
